FAERS Safety Report 13016869 (Version 1)
Quarter: 2016Q4

REPORT INFORMATION
  Report Type: Report from Study
  Country: US (occurrence: US)
  Receive Date: 20161212
  Receipt Date: 20161212
  Transmission Date: 20170207
  Serious: Yes (Death)
  Sender: FDA-Public Use
  Company Number: US-ROCHE-1866664

PATIENT
  Sex: Male
  Weight: 90.8 kg

DRUGS (1)
  1. ACTIVASE [Suspect]
     Active Substance: ALTEPLASE
     Indication: CEREBRAL INFARCTION
     Dosage: 100MG X ONE DOSE. ;ONGOING: NO
     Route: 065
     Dates: start: 20160227

REACTIONS (1)
  - Death [Fatal]
